FAERS Safety Report 8470959-4 (Version None)
Quarter: 2012Q2

REPORT INFORMATION
  Report Type: 
  Country: None (occurrence: None)
  Receive Date: 20120627
  Receipt Date: 20120615
  Transmission Date: 20120825
  Serious: Yes (Other)
  Sender: FDA-Public Use
  Company Number: DE-CELGENEUS-062-C5013-12022913

PATIENT
  Age: 77 Year
  Sex: Female

DRUGS (8)
  1. MELPHALAN HYDROCHLORIDE [Suspect]
     Route: 065
     Dates: end: 20110107
  2. THALIDOMIDE [Suspect]
     Dosage: 50 MILLIGRAM
     Route: 048
     Dates: end: 20110214
  3. THALIDOMIDE [Suspect]
     Indication: MULTIPLE MYELOMA
     Dosage: 100 MILLIGRAM
     Route: 048
     Dates: start: 20090929
  4. REVLIMID [Suspect]
     Route: 048
     Dates: start: 20110930, end: 20120507
  5. DEXAMETHASONE [Concomitant]
     Route: 065
     Dates: start: 20110930
  6. MELPHALAN HYDROCHLORIDE [Suspect]
     Indication: MULTIPLE MYELOMA
     Route: 065
     Dates: start: 20090929
  7. PREDNISONE TAB [Suspect]
     Indication: MULTIPLE MYELOMA
     Route: 065
     Dates: start: 20090929
  8. PREDNISONE TAB [Suspect]
     Route: 065
     Dates: end: 20110107

REACTIONS (1)
  - ACUTE MYELOID LEUKAEMIA [None]
